FAERS Safety Report 22071222 (Version 3)
Quarter: 2023Q1

REPORT INFORMATION
  Report Type: Spontaneous
  Country: CZ (occurrence: CZ)
  Receive Date: 20230307
  Receipt Date: 20230330
  Transmission Date: 20230417
  Serious: Yes (Hospitalization)
  Sender: FDA-Public Use
  Company Number: CZ202302006814

PATIENT
  Age: 59 Year
  Sex: Male
  Weight: 101 kg

DRUGS (5)
  1. BENDAMUSTINE HYDROCHLORIDE [Suspect]
     Active Substance: BENDAMUSTINE HYDROCHLORIDE
     Indication: Chronic lymphocytic leukaemia
     Dosage: 56.8 MG, BR THERAPY, MONTHLY
     Route: 042
     Dates: start: 20221004
  2. RITUXIMAB [Suspect]
     Active Substance: RITUXIMAB
     Indication: Chronic lymphocytic leukaemia
     Dosage: 1135 MG, BR THERAPY, MONTHLY
     Route: 042
     Dates: start: 20221004
  3. RITUXIMAB [Suspect]
     Active Substance: RITUXIMAB
     Dosage: 1135 MG, BR THERAPY, MONTHLY
     Route: 042
     Dates: start: 20230124
  4. ALLOPURINOL [Concomitant]
     Active Substance: ALLOPURINOL
     Indication: Prophylaxis
     Dosage: UNK
     Route: 065
     Dates: start: 20220905
  5. COTRIMOXAZOLE [Concomitant]
     Active Substance: SULFAMETHOXAZOLE\TRIMETHOPRIM
     Indication: Antifungal prophylaxis
     Dosage: UNK
     Route: 065
     Dates: start: 20221004

REACTIONS (2)
  - COVID-19 pneumonia [Recovered/Resolved]
  - Candida infection [Recovered/Resolved]

NARRATIVE: CASE EVENT DATE: 20230206
